APPROVED DRUG PRODUCT: BUPIVACAINE HYDROCHLORIDE
Active Ingredient: BUPIVACAINE HYDROCHLORIDE
Strength: 0.5%
Dosage Form/Route: INJECTABLE;INJECTION
Application: A211096 | Product #001
Applicant: CIVICA INC
Approved: Feb 19, 2019 | RLD: No | RS: No | Type: DISCN